FAERS Safety Report 14790462 (Version 1)
Quarter: 2018Q2

REPORT INFORMATION
  Report Type: Spontaneous
  Country: US (occurrence: US)
  Receive Date: 20180413
  Receipt Date: 20180413
  Transmission Date: 20180711
  Serious: Yes (Other)
  Sender: FDA-Public Use
  Company Number: None

PATIENT
  Age: 47 Year
  Sex: Female
  Weight: 89.19 kg

DRUGS (27)
  1. GABAPENTIN. [Concomitant]
     Active Substance: GABAPENTIN
  2. NYSTATIN. [Concomitant]
     Active Substance: NYSTATIN
  3. PROBIOTIC [Concomitant]
     Active Substance: PROBIOTICS NOS
  4. QVAR [Suspect]
     Active Substance: BECLOMETHASONE DIPROPIONATE
     Indication: BRONCHITIS
     Dosage: ?          QUANTITY:2 PUFF(S);?
     Route: 055
     Dates: start: 20180413
  5. ZYRTEC [Concomitant]
     Active Substance: CETIRIZINE HYDROCHLORIDE
  6. Q VAR [Concomitant]
  7. FLEXERIL [Concomitant]
     Active Substance: CYCLOBENZAPRINE HYDROCHLORIDE
  8. FUROSEMIDE. [Concomitant]
     Active Substance: FUROSEMIDE
  9. PANTOPRAZOL [Concomitant]
     Active Substance: PANTOPRAZOLE SODIUM
  10. VITAMIN D3 [Concomitant]
     Active Substance: CHOLECALCIFEROL
  11. EPIPEN [Concomitant]
     Active Substance: EPINEPHRINE
  12. VITAMIN B COMPLEX [Concomitant]
     Active Substance: CYANOCOBALAMIN\DEXPANTHENOL\NIACINAMIDE\PYRIDOXINE HYDROCHLORIDE\RIBOFLAVIN 5^-PHOSPHATE SODIUM\THIAMINE HYDROCHLORIDE\VITAMIN B COMPLEX
  13. BIOTIN [Concomitant]
     Active Substance: BIOTIN
  14. MONTELUKAST [Concomitant]
     Active Substance: MONTELUKAST SODIUM
  15. NORCO [Concomitant]
     Active Substance: ACETAMINOPHEN\HYDROCODONE BITARTRATE
  16. MOBIC [Concomitant]
     Active Substance: MELOXICAM
  17. GLUCOSAMEMINE/CHONDRODTIN/MSM [Concomitant]
  18. OMEGA 3 [Concomitant]
     Active Substance: OMEGA-3 FATTY ACIDS
  19. ALBUTEROL. [Concomitant]
     Active Substance: ALBUTEROL
  20. BUP/APAP/CAF [Concomitant]
  21. AMITIZA [Concomitant]
     Active Substance: LUBIPROSTONE
  22. MAGNESIUM [Concomitant]
     Active Substance: MAGNESIUM
  23. BREO ELLIPTA [Concomitant]
     Active Substance: FLUTICASONE FUROATE\VILANTEROL TRIFENATATE
  24. C-PAP [Concomitant]
  25. TOPAMAX [Concomitant]
     Active Substance: TOPIRAMATE
  26. Z-PACK [Concomitant]
     Active Substance: AZITHROMYCIN DIHYDRATE
  27. NARATRIPTAN [Concomitant]
     Active Substance: NARATRIPTAN HYDROCHLORIDE

REACTIONS (3)
  - Dizziness [None]
  - Tremor [None]
  - Feeling hot [None]

NARRATIVE: CASE EVENT DATE: 20180413
